FAERS Safety Report 7758959-0 (Version None)
Quarter: 2011Q3

REPORT INFORMATION
  Report Type: 
  Country: None (occurrence: None)
  Receive Date: 20110919
  Receipt Date: 20110909
  Transmission Date: 20111222
  Serious: Yes (Hospitalization)
  Sender: FDA-Public Use
  Company Number: JP-ASTELLAS-2011US005753

PATIENT
  Age: 60 Year
  Sex: Male

DRUGS (1)
  1. AMBISOME [Suspect]
     Indication: BRONCHOPULMONARY ASPERGILLOSIS
     Dosage: UNK
     Route: 042

REACTIONS (2)
  - CARDIAC FAILURE [None]
  - HYPOKALAEMIA [None]
